FAERS Safety Report 7254082-2 (Version None)
Quarter: 2011Q1

REPORT INFORMATION
  Report Type: 
  Country: None (occurrence: None)
  Receive Date: 20110129
  Receipt Date: 20100329
  Transmission Date: 20110831
  Serious: Yes (Hospitalization)
  Sender: FDA-Public Use
  Company Number: US-ABBOTT-10P-163-0631726-00

PATIENT
  Sex: Female
  Weight: 38.59 kg

DRUGS (3)
  1. HUMIRA [Suspect]
     Indication: RHEUMATOID ARTHRITIS
     Dates: start: 20080101
  2. MEDROL [Concomitant]
     Indication: PNEUMONIA
     Dates: start: 20100201
  3. ADVAIR [Concomitant]
     Indication: PNEUMONIA
     Dates: start: 20100201

REACTIONS (8)
  - URINARY TRACT INFECTION [None]
  - JOINT SWELLING [None]
  - INFLUENZA LIKE ILLNESS [None]
  - DYSPNOEA [None]
  - JOINT EFFUSION [None]
  - WEIGHT DECREASED [None]
  - PNEUMONIA [None]
  - ARTHRITIS [None]
